FAERS Safety Report 17439173 (Version 4)
Quarter: 2025Q4

REPORT INFORMATION
  Report Type: Spontaneous
  Country: CA (occurrence: CA)
  Receive Date: 20200220
  Receipt Date: 20251226
  Transmission Date: 20260117
  Serious: Yes (Hospitalization, Other)
  Sender: AUROBINDO
  Company Number: CA-AUROBINDO-AUR-APL-2020-008699

PATIENT
  Age: 35 Year
  Sex: Male

DRUGS (32)
  1. QUETIAPINE [Interacting]
     Active Substance: QUETIAPINE
     Indication: Poor quality sleep
     Dosage: UNK
     Route: 061
  2. QUETIAPINE [Interacting]
     Active Substance: QUETIAPINE
     Indication: Bipolar I disorder
  3. QUETIAPINE [Interacting]
     Active Substance: QUETIAPINE
     Indication: Psychotic disorder
  4. ABILIFY [Interacting]
     Active Substance: ARIPIPRAZOLE
     Indication: Psychotic disorder
     Dosage: 10 MILLIGRAM, ONCE A DAY
     Route: 061
  5. ABILIFY [Interacting]
     Active Substance: ARIPIPRAZOLE
     Indication: Bipolar I disorder
     Dosage: 40 MILLIGRAM, ONCE A DAY
  6. ABILIFY MAINTENA [Interacting]
     Active Substance: ARIPIPRAZOLE
     Indication: Psychotic disorder
     Dosage: 400 MILLIGRAM
  7. ABILIFY MAINTENA [Interacting]
     Active Substance: ARIPIPRAZOLE
     Indication: Bipolar I disorder
  8. ABILIFY MAINTENA [Interacting]
     Active Substance: ARIPIPRAZOLE
     Indication: Psychotic disorder
     Dosage: UNK
     Route: 065
  9. ABILIFY MAINTENA [Interacting]
     Active Substance: ARIPIPRAZOLE
     Indication: Bipolar I disorder
  10. CLONAZEPAM [Interacting]
     Active Substance: CLONAZEPAM
     Indication: Poor quality sleep
     Dosage: UNK
     Route: 065
  11. CLONAZEPAM [Interacting]
     Active Substance: CLONAZEPAM
     Indication: Bipolar I disorder
  12. CLONAZEPAM [Interacting]
     Active Substance: CLONAZEPAM
     Indication: Dystonia
  13. CLONAZEPAM [Interacting]
     Active Substance: CLONAZEPAM
     Indication: Psychotic disorder
  14. LEVOMEPROMAZINE [Interacting]
     Active Substance: LEVOMEPROMAZINE
     Indication: Poor quality sleep
     Dosage: UNK
     Route: 065
  15. LITHIUM [Interacting]
     Active Substance: LITHIUM
     Indication: Affective disorder
     Dosage: UNK, ONCE A DAY
     Route: 061
  16. LITHIUM [Interacting]
     Active Substance: LITHIUM
     Indication: Bipolar I disorder
  17. LEVOMEPROMAZINE [Interacting]
     Active Substance: LEVOMEPROMAZINE
     Indication: Poor quality sleep
     Dosage: UNK
     Route: 065
  18. LEVOMEPROMAZINE [Interacting]
     Active Substance: LEVOMEPROMAZINE
     Indication: Bipolar I disorder
  19. OXAZEPAM [Interacting]
     Active Substance: OXAZEPAM
     Indication: Poor quality sleep
     Dosage: UNK
     Route: 065
  20. OXAZEPAM [Interacting]
     Active Substance: OXAZEPAM
     Indication: Bipolar I disorder
  21. TEMAZEPAM [Interacting]
     Active Substance: TEMAZEPAM
     Indication: Poor quality sleep
     Dosage: UNK
     Route: 065
  22. TEMAZEPAM [Interacting]
     Active Substance: TEMAZEPAM
     Indication: Bipolar I disorder
  23. ZOPICLONE [Interacting]
     Active Substance: ZOPICLONE
     Indication: Poor quality sleep
     Dosage: UNK
     Route: 065
  24. ZOPICLONE [Interacting]
     Active Substance: ZOPICLONE
     Indication: Bipolar I disorder
  25. LORAZEPAM [Concomitant]
     Active Substance: LORAZEPAM
     Indication: Bipolar I disorder
     Dosage: UNK
     Route: 065
  26. BENZTROPINE MESYLATE [Concomitant]
     Active Substance: BENZTROPINE MESYLATE
     Indication: Dystonic tremor
     Dosage: UNK, ONCE A DAY
     Route: 065
  27. BENZTROPINE MESYLATE [Concomitant]
     Active Substance: BENZTROPINE MESYLATE
     Indication: Bipolar I disorder
  28. BENZTROPINE MESYLATE [Concomitant]
     Active Substance: BENZTROPINE MESYLATE
     Indication: Dystonia
  29. BENZTROPINE MESYLATE [Concomitant]
     Active Substance: BENZTROPINE MESYLATE
     Indication: Tremor
  30. SERTRALINE [Concomitant]
     Active Substance: SERTRALINE HYDROCHLORIDE
     Indication: Depressed mood
     Dosage: UNK
     Route: 065
  31. SERTRALINE [Concomitant]
     Active Substance: SERTRALINE HYDROCHLORIDE
     Indication: Bipolar disorder
  32. VORTIOXETINE [Concomitant]
     Active Substance: VORTIOXETINE
     Indication: Antidepressant therapy
     Dosage: 10 MILLIGRAM, ONCE A DAY
     Route: 061

REACTIONS (11)
  - Tremor [Recovering/Resolving]
  - Musculoskeletal stiffness [Recovering/Resolving]
  - Dystonia [Recovering/Resolving]
  - Dystonic tremor [Recovering/Resolving]
  - Muscle contracture [Recovering/Resolving]
  - Restlessness [Recovering/Resolving]
  - Drug interaction [Recovering/Resolving]
  - Drug ineffective [Recovering/Resolving]
  - Product use in unapproved indication [Recovering/Resolving]
  - Off label use [Recovering/Resolving]
  - Therapeutic product effect incomplete [Recovering/Resolving]
